FAERS Safety Report 10011051 (Version 1)
Quarter: 2014Q1

REPORT INFORMATION
  Report Type: Spontaneous
  Country: US (occurrence: US)
  Receive Date: 20140314
  Receipt Date: 20140314
  Transmission Date: 20141002
  Serious: Yes (Hospitalization, Other)
  Sender: FDA-Public Use
  Company Number: US-BAYER-2014-037209

PATIENT
  Age: 46 Year
  Sex: Female
  Weight: 111 kg

DRUGS (4)
  1. YAZ [Suspect]
  2. LIPITOR [Concomitant]
     Dosage: 40 MG, UNK
  3. FLUOXETINE [Concomitant]
     Dosage: 10 MG, UNK
  4. ZESTRIL [Concomitant]

REACTIONS (4)
  - Deep vein thrombosis [None]
  - Pulmonary embolism [None]
  - Deep vein thrombosis [None]
  - Pulmonary embolism [None]
